FAERS Safety Report 10008759 (Version 2)
Quarter: 2014Q1

REPORT INFORMATION
  Report Type: Spontaneous
  Country: US (occurrence: US)
  Receive Date: 20140312
  Receipt Date: 20140312
  Transmission Date: 20141002
  Serious: No
  Sender: FDA-Public Use
  Company Number: US-INCYTE CORPORATION-2012IN000551

PATIENT
  Age: 63 Year
  Sex: Female
  Weight: 59.41 kg

DRUGS (4)
  1. JAKAFI [Suspect]
     Indication: MYELOFIBROSIS
     Dosage: 10 MG, BID
     Route: 048
     Dates: start: 20120409
  2. NORVASC [Suspect]
  3. HYDREA [Concomitant]
     Dosage: UNK
  4. AGRYLIN [Concomitant]
     Dosage: UNK

REACTIONS (4)
  - Muscular weakness [Recovered/Resolved]
  - Faecal incontinence [Recovered/Resolved]
  - Wrong technique in drug usage process [Unknown]
  - Drug interaction [None]
